FAERS Safety Report 25811220 (Version 1)
Quarter: 2025Q3

REPORT INFORMATION
  Report Type: Spontaneous
  Country: GB (occurrence: GB)
  Receive Date: 20250917
  Receipt Date: 20250917
  Transmission Date: 20251021
  Serious: Yes (Other)
  Sender: AUROBINDO
  Company Number: GB-MHRA-TPP4076175C13564676YC1756726071525

PATIENT
  Age: 82 Year
  Sex: Female
  Weight: 137 kg

DRUGS (10)
  1. MEMANTINE HYDROCHLORIDE [Suspect]
     Active Substance: MEMANTINE HYDROCHLORIDE
     Indication: Product used for unknown indication
     Route: 065
     Dates: start: 20250412, end: 20250826
  2. CODEINE PHOSPHATE [Concomitant]
     Active Substance: CODEINE PHOSPHATE
     Indication: Ill-defined disorder
     Route: 065
     Dates: start: 20250710, end: 20250807
  3. GAVISCON [Concomitant]
     Active Substance: ALUMINUM HYDROXIDE\MAGNESIUM CARBONATE
     Indication: Ill-defined disorder
     Dosage: 20 MILLILITER, FOUR TIMES/DAY
     Route: 065
     Dates: start: 20241010
  4. CLOPIDOGREL [Concomitant]
     Active Substance: CLOPIDOGREL BISULFATE
     Indication: Ill-defined disorder
     Dosage: 1 DOSAGE FORM, ONCE A DAY
     Route: 065
     Dates: start: 20250416
  5. MINERAL OIL\PARAFFIN [Concomitant]
     Active Substance: MINERAL OIL\PARAFFIN
     Indication: Ill-defined disorder
     Route: 065
     Dates: start: 20250416
  6. LANSOPRAZOLE [Concomitant]
     Active Substance: LANSOPRAZOLE
     Indication: Ill-defined disorder
     Dosage: 1 DOSAGE FORM, TWO TIMES A DAY
     Route: 065
     Dates: start: 20250416
  7. NAPROXEN [Concomitant]
     Active Substance: NAPROXEN
     Indication: Ill-defined disorder
     Dosage: 1 DOSAGE FORM, TWO TIMES A DAY
     Route: 065
     Dates: start: 20250416
  8. ACETAMINOPHEN [Concomitant]
     Active Substance: ACETAMINOPHEN
     Indication: Ill-defined disorder
     Route: 065
     Dates: start: 20250416
  9. CANDESARTAN [Concomitant]
     Active Substance: CANDESARTAN
     Indication: Ill-defined disorder
     Route: 065
     Dates: start: 20250515
  10. ROSUVASTATIN [Concomitant]
     Active Substance: ROSUVASTATIN
     Indication: Ill-defined disorder
     Dosage: 1 DOSAGE FORM, ONCE A DAY (~TAKE ONE IN THE EVENING TO LOWER CHOLESTEROL LE)
     Route: 065
     Dates: start: 20250515

REACTIONS (2)
  - Disorientation [Recovering/Resolving]
  - Drug intolerance [Unknown]

NARRATIVE: CASE EVENT DATE: 20250826
